FAERS Safety Report 18463836 (Version 1)
Quarter: 2020Q4

REPORT INFORMATION
  Report Type: Spontaneous
  Country: BR (occurrence: BR)
  Receive Date: 20201104
  Receipt Date: 20201104
  Transmission Date: 20210114
  Serious: Yes (Other)
  Sender: FDA-Public Use
  Company Number: NVSC2020BR293727

PATIENT
  Age: 88 Year
  Sex: Female

DRUGS (1)
  1. ULTIBRO [Suspect]
     Active Substance: GLYCOPYRRONIUM\INDACATEROL
     Indication: BRONCHITIS
     Dosage: 1 DF, QD
     Route: 065

REACTIONS (3)
  - Femur fracture [Unknown]
  - Expired product administered [Unknown]
  - Fall [Unknown]

NARRATIVE: CASE EVENT DATE: 20201025
